FAERS Safety Report 8520806 (Version 4)
Quarter: 2012Q4

REPORT INFORMATION
  Report Type: 
  Country: US (occurrence: US)
  Receive Date: 20120419
  Receipt Date: 20120917
  Transmission Date: 20130627
  Serious: No
  Sender: FDA-Public Use
  Company Number: US-ASTRAZENECA-2011SE45681

PATIENT
  Age: 45 Year
  Sex: Male
  Weight: 103.9 kg

DRUGS (45)
  1. NEXIUM [Suspect]
     Indication: EROSIVE OESOPHAGITIS
     Route: 048
     Dates: start: 200701
  2. NEXIUM [Suspect]
     Indication: EROSIVE OESOPHAGITIS
     Route: 048
     Dates: start: 20070118
  3. NEXIUM [Suspect]
     Indication: EROSIVE OESOPHAGITIS
     Route: 048
     Dates: start: 20070120
  4. NEXIUM [Suspect]
     Indication: EROSIVE OESOPHAGITIS
     Route: 048
     Dates: start: 20070129
  5. NEXIUM [Suspect]
     Indication: EROSIVE OESOPHAGITIS
     Dosage: BID
     Route: 048
     Dates: start: 200701, end: 20070920
  6. NEXIUM [Suspect]
     Indication: EROSIVE OESOPHAGITIS
     Route: 048
     Dates: end: 20071004
  7. FERROUS SULPHATE [Concomitant]
     Dates: start: 20070118
  8. FERROUS SULPHATE [Concomitant]
     Dates: start: 20070129
  9. PERCOCET [Concomitant]
     Indication: PAIN
     Dosage: 5/325 1 BID PRN
     Dates: start: 20070709
  10. PERCOCET [Concomitant]
     Indication: PAIN
     Dosage: 5 MG EVERY FOUR TO SIX HOURS
     Dates: start: 200707, end: 2008
  11. MAGNESIUM OXIDE [Concomitant]
     Route: 048
     Dates: start: 20070118
  12. ROBAXIN [Concomitant]
     Dates: start: 200707, end: 2008
  13. ROBAXIN [Concomitant]
     Dates: start: 20070911
  14. NEURONTIN [Concomitant]
     Indication: BACK PAIN
     Dates: start: 200707
  15. NEURONTIN [Concomitant]
     Indication: BACK PAIN
     Route: 048
     Dates: start: 20070917
  16. NEURONTIN [Concomitant]
     Indication: BACK PAIN
     Route: 048
     Dates: start: 20071004
  17. OXYCONTIN [Concomitant]
     Indication: PAIN
     Route: 048
     Dates: start: 200707, end: 2008
  18. TORADOL [Concomitant]
     Dates: start: 200609
  19. MEDROL [Concomitant]
     Dates: start: 200609
  20. ALLEGRA [Concomitant]
     Dosage: 60 TO 120 MG
     Route: 048
     Dates: start: 20071004
  21. OMACOR [Concomitant]
     Indication: BLOOD TRIGLYCERIDES
     Dates: start: 20071004
  22. OMACOR [Concomitant]
     Indication: BLOOD TRIGLYCERIDES
     Dates: start: 2007
  23. REGLAN [Concomitant]
     Indication: NAUSEA
     Dosage: 10 MG EVERY FOUR TO SIX HOURS AS NEEDED
     Route: 048
     Dates: start: 200707, end: 2008
  24. REGLAN [Concomitant]
     Indication: NAUSEA
     Route: 048
     Dates: start: 20070922
  25. REGLAN [Concomitant]
     Indication: NAUSEA
     Route: 048
     Dates: start: 20071004
  26. ZETIA [Concomitant]
     Route: 048
     Dates: start: 20070922
  27. ZETIA [Concomitant]
     Route: 048
     Dates: start: 20071004
  28. TRICOR [Concomitant]
     Indication: BLOOD TRIGLYCERIDES
     Route: 048
     Dates: start: 20070922
  29. TRICOR [Concomitant]
     Indication: BLOOD TRIGLYCERIDES
     Route: 048
     Dates: start: 20071004
  30. TRICOR [Concomitant]
     Indication: BLOOD TRIGLYCERIDES
     Dates: start: 2007
  31. ZOFRAN [Concomitant]
     Route: 048
     Dates: start: 20071004
  32. PHENERGAN [Concomitant]
     Route: 048
     Dates: start: 20071004
  33. CALCIUM [Concomitant]
     Dates: start: 200707, end: 2008
  34. CARAFATE [Concomitant]
  35. VITAMINE D 3 [Concomitant]
     Indication: VITAMIN D DECREASED
     Dates: start: 200707
  36. CRESTOR [Concomitant]
     Indication: BLOOD CHOLESTEROL
     Dates: start: 2007
  37. RANITIDINE [Concomitant]
     Indication: GASTROOESOPHAGEAL REFLUX DISEASE
     Dates: start: 2007
  38. RANITIDINE [Concomitant]
     Indication: PEPTIC ULCER
     Dates: start: 2007
  39. MULTIVITAMIN [Concomitant]
     Indication: MEDICAL DIET
     Dosage: DAILY
     Dates: start: 2007
  40. COQLO [Concomitant]
     Indication: SOMATOSTATIN ANALOGUE THERAPY
     Dates: start: 2007
  41. ASPIRIN [Concomitant]
     Indication: CORONARY ARTERY DISEASE
     Dates: start: 2007
  42. TYLENOL PM [Concomitant]
     Indication: BACK PAIN
     Dates: start: 2007
  43. TYLENOL PM [Concomitant]
     Indication: SLEEP DISORDER
     Dates: start: 2007
  44. VITAMIN C [Concomitant]
     Indication: MEDICAL DIET
     Dates: start: 2007
  45. FLAXSEED OIL [Concomitant]
     Indication: MEDICAL DIET
     Dates: start: 2007

REACTIONS (18)
  - Thoracic vertebral fracture [Unknown]
  - Osteoporosis [Unknown]
  - Spinal compression fracture [Unknown]
  - Bone disorder [Unknown]
  - Fracture [Unknown]
  - Pathological fracture [Unknown]
  - Rib fracture [Unknown]
  - Spinal fracture [Unknown]
  - Compression fracture [Unknown]
  - Osteoarthritis [Unknown]
  - Pancreatitis acute [Unknown]
  - Nephrolithiasis [Unknown]
  - Body height decreased [Unknown]
  - Rash [Unknown]
  - Weight increased [Unknown]
  - Arthralgia [Unknown]
  - Dyspepsia [Unknown]
  - Nausea [Unknown]
